FAERS Safety Report 4774740-9 (Version None)
Quarter: 2005Q3

REPORT INFORMATION
  Report Type: 
  Country: None (occurrence: None)
  Receive Date: 20050919
  Receipt Date: 20050907
  Transmission Date: 20060218
  Serious: Yes (Hospitalization)
  Sender: FDA-Public Use
  Company Number: 106976ISR

PATIENT
  Age: 38 Year
  Sex: Female

DRUGS (6)
  1. GLATIRAMER ACETATE [Suspect]
     Indication: MULTIPLE SCLEROSIS
     Dosage: 20 MILLIGRAM
     Route: 058
     Dates: start: 20030101, end: 20050510
  2. PREDNISOLONE [Concomitant]
  3. NEXIUM 20 (ESOMEPRAZOLE) [Concomitant]
  4. TETRAZEPAM [Concomitant]
  5. COLECALCIFEROL [Concomitant]
  6. TRIAMVASK-CREME [Concomitant]

REACTIONS (13)
  - BRONCHIAL OEDEMA [None]
  - CONDITION AGGRAVATED [None]
  - ERYTHEMA NODOSUM [None]
  - LEUKOCYTOCLASTIC VASCULITIS [None]
  - LYMPHADENOPATHY [None]
  - MULTIPLE SCLEROSIS [None]
  - OEDEMA PERIPHERAL [None]
  - POLYARTHRITIS [None]
  - REFUSAL OF TREATMENT BY RELATIVE [None]
  - SARCOIDOSIS [None]
  - SEPTAL PANNICULITIS [None]
  - SPINAL DISORDER [None]
  - URINARY TRACT INFECTION [None]
